FAERS Safety Report 18780202 (Version 1)
Quarter: 2021Q1

REPORT INFORMATION
  Report Type: Spontaneous
  Country: US (occurrence: US)
  Receive Date: 20210124
  Receipt Date: 20210124
  Transmission Date: 20210419
  Serious: Yes (Hospitalization)
  Sender: FDA-Public Use
  Company Number: None

PATIENT
  Age: 52 Year
  Sex: Female
  Weight: 80.55 kg

DRUGS (2)
  1. BAMLANIVIMAB. [Concomitant]
     Active Substance: BAMLANIVIMAB
     Dates: start: 20210122, end: 20210122
  2. BAMLANIVIMAB. [Suspect]
     Active Substance: BAMLANIVIMAB

REACTIONS (5)
  - Dyspnoea [None]
  - Oxygen saturation decreased [None]
  - Pyrexia [None]
  - Diarrhoea [None]
  - Infusion related reaction [None]

NARRATIVE: CASE EVENT DATE: 20210122
